FAERS Safety Report 14376180 (Version 1)
Quarter: 2018Q1

REPORT INFORMATION
  Report Type: Report from Study
  Country: CA (occurrence: CA)
  Receive Date: 20180111
  Receipt Date: 20180111
  Transmission Date: 20180509
  Serious: Yes (Other)
  Sender: FDA-Public Use
  Company Number: CA-JNJFOC-20180109762

PATIENT
  Age: 16 Year
  Sex: Male
  Weight: 64 kg

DRUGS (4)
  1. REMICADE [Suspect]
     Active Substance: INFLIXIMAB
     Indication: CROHN^S DISEASE
     Route: 042
     Dates: start: 20060620
  2. ZOFRAN [Concomitant]
     Active Substance: ONDANSETRON HYDROCHLORIDE
     Indication: PROPHYLAXIS OF NAUSEA AND VOMITING
     Route: 065
  3. VALIUM [Concomitant]
     Active Substance: DIAZEPAM
     Indication: MYALGIA
     Route: 065
  4. REMICADE [Suspect]
     Active Substance: INFLIXIMAB
     Indication: CROHN^S DISEASE
     Route: 042
     Dates: start: 20180106

REACTIONS (8)
  - Abdominal pain [Unknown]
  - Haematochezia [Unknown]
  - Skin infection [Recovering/Resolving]
  - Mucous stools [Unknown]
  - Diarrhoea [Unknown]
  - Off label use [Unknown]
  - Clostridium difficile infection [Unknown]
  - Product use issue [Unknown]

NARRATIVE: CASE EVENT DATE: 20060620
